FAERS Safety Report 10170868 (Version 1)
Quarter: 2014Q2

REPORT INFORMATION
  Report Type: Spontaneous
  Country: US (occurrence: None)
  Receive Date: 20140513
  Receipt Date: 20140513
  Transmission Date: 20141212
  Serious: Yes (Hospitalization)
  Sender: FDA-Public Use
  Company Number: None

PATIENT
  Age: 64 Year
  Sex: Male

DRUGS (2)
  1. PACLITAXEL [Suspect]
     Indication: FEBRILE NEUTROPENIA
     Route: 042
     Dates: start: 20140317
  2. CARBOPLATIN [Suspect]
     Route: 042
     Dates: start: 20140317

REACTIONS (6)
  - Pyrexia [None]
  - Respiratory tract congestion [None]
  - Fatigue [None]
  - Malaise [None]
  - Dyspnoea [None]
  - Neutrophil count decreased [None]
